FAERS Safety Report 5620353-6 (Version None)
Quarter: 2008Q1

REPORT INFORMATION
  Report Type: 
  Country: None (occurrence: None)
  Receive Date: 20080208
  Receipt Date: 20080130
  Transmission Date: 20080703
  Serious: Yes (Hospitalization)
  Sender: FDA-Public Use
  Company Number: DE-ELI_LILLY_AND_COMPANY-DE200801002203

PATIENT
  Sex: Female

DRUGS (13)
  1. BYETTA [Suspect]
     Dosage: 5 UG, 2/D
     Route: 058
     Dates: start: 20071229, end: 20080107
  2. BYETTA [Suspect]
     Dosage: 5 UG, 2/D
     Route: 058
     Dates: start: 20080109
  3. METHIZOL [Concomitant]
     Dosage: UNK, UNKNOWN
     Route: 065
  4. ASPIRIN [Concomitant]
     Dosage: UNK, UNKNOWN
     Route: 065
  5. TOREM [Concomitant]
     Dosage: UNK, UNKNOWN
     Route: 065
  6. NORVASK [Concomitant]
     Dosage: UNK, UNKNOWN
     Route: 065
  7. IRENAT [Concomitant]
     Dosage: UNK, UNKNOWN
     Route: 065
  8. DELIX [Concomitant]
     Dosage: UNK, UNKNOWN
     Route: 065
  9. LOCOL [Concomitant]
     Dosage: UNK, UNKNOWN
     Route: 065
  10. PANTOZOL [Concomitant]
     Dosage: UNK, UNKNOWN
     Route: 065
  11. BERLOCID [Concomitant]
     Dosage: UNK, UNKNOWN
     Route: 065
  12. AMARYL [Concomitant]
     Dosage: UNK, UNKNOWN
     Dates: start: 20080101
  13. METFORMIN HCL [Concomitant]
     Dosage: UNK, UNKNOWN

REACTIONS (2)
  - DEPRESSION [None]
  - LISTLESS [None]
